FAERS Safety Report 14733474 (Version 3)
Quarter: 2018Q2

REPORT INFORMATION
  Report Type: Spontaneous
  Country: IT (occurrence: IT)
  Receive Date: 20180409
  Receipt Date: 20180430
  Transmission Date: 20180711
  Serious: Yes (Hospitalization, Other)
  Sender: FDA-Public Use
  Company Number: IT-009507513-1804ITA001720

PATIENT
  Age: 76 Year
  Sex: Male

DRUGS (10)
  1. MESALAMINE. [Concomitant]
     Active Substance: MESALAMINE
     Dosage: 800 MG, UNK
     Route: 048
  2. CARDICOR [Concomitant]
     Active Substance: BISOPROLOL
     Dosage: 2.5 MG, UNK
     Route: 048
  3. DUROGESIC [Concomitant]
     Active Substance: FENTANYL
     Dosage: 12 MICROGRAM/HOUR
     Route: 062
  4. DELTACORTENE [Concomitant]
     Active Substance: PREDNISONE
     Dosage: 37.5 MG
     Route: 048
  5. COUMADIN [Suspect]
     Active Substance: WARFARIN SODIUM
     Indication: ATRIAL FIBRILLATION
     Dosage: 5 MG, PRN
     Route: 048
     Dates: end: 20180121
  6. LANOXIN [Concomitant]
     Active Substance: DIGOXIN
     Dosage: 125 MICROGRAM, UNK
     Route: 048
  7. BIVIS [Concomitant]
     Active Substance: AMLODIPINE BESYLATE\OLMESARTAN MEDOXOMIL
     Dosage: 50 MG, UNK
     Route: 048
  8. LASIX [Concomitant]
     Active Substance: FUROSEMIDE
     Indication: DIURETIC THERAPY
     Dosage: 25 MG, UNK
     Route: 048
  9. KEYTRUDA [Suspect]
     Active Substance: PEMBROLIZUMAB
     Indication: MALIGNANT MELANOMA
     Dosage: 200 MG, CYCLICAL
     Route: 042
  10. FERRO-GRAD [Concomitant]
     Active Substance: FERROUS SULFATE
     Dosage: 105 MG, UNK
     Route: 048

REACTIONS (2)
  - Neutrophil count decreased [Recovering/Resolving]
  - Septic shock [Recovering/Resolving]

NARRATIVE: CASE EVENT DATE: 20180121
